FAERS Safety Report 20479900 (Version 1)
Quarter: 2022Q1

REPORT INFORMATION
  Report Type: Spontaneous
  Country: US (occurrence: None)
  Receive Date: 20220215
  Receipt Date: 20220215
  Transmission Date: 20220424
  Serious: Yes (unspecified)
  Sender: FDA-Public Use
  Company Number: None

PATIENT
  Age: 79 Year
  Sex: Male
  Weight: 68.2 kg

DRUGS (2)
  1. CISPLATIN [Suspect]
     Active Substance: CISPLATIN
     Indication: Chronic kidney disease
     Dosage: OTHER FREQUENCY : ONE TIME INFUSION;?
     Route: 041
     Dates: start: 20220209, end: 20220209
  2. Diphenhydramine 25 mg IVP [Concomitant]
     Dates: start: 20220209, end: 20220209

REACTIONS (5)
  - Eye pruritus [None]
  - Pruritus [None]
  - Ocular hyperaemia [None]
  - Blood pressure increased [None]
  - Heart rate decreased [None]

NARRATIVE: CASE EVENT DATE: 20220209
